FAERS Safety Report 9930398 (Version 1)
Quarter: 2014Q1

REPORT INFORMATION
  Report Type: Spontaneous
  Country: US (occurrence: US)
  Receive Date: 20140227
  Receipt Date: 20140227
  Transmission Date: 20141002
  Serious: No
  Sender: FDA-Public Use
  Company Number: US-AMGEN-USASP2013084856

PATIENT
  Age: 54 Year
  Sex: Male

DRUGS (10)
  1. ENBREL [Suspect]
     Indication: PRODUCT USED FOR UNKNOWN INDICATION
     Dosage: 50 MG, QWK
     Route: 058
  2. SIMVASTATIN [Concomitant]
     Dosage: 80 MG, UNK
     Route: 048
  3. AMILORIDE [Concomitant]
     Dosage: 5 MG, UNK
     Route: 048
  4. MELOXICAM [Concomitant]
     Dosage: 7.5 MG, UNK
     Route: 048
  5. VALACYCLOVIR [Concomitant]
     Dosage: 500 MG, UNK
     Route: 048
  6. IRON [Concomitant]
     Dosage: UNK
     Route: 048
  7. ALEVE [Concomitant]
     Dosage: 220 MG, UNK
     Route: 048
  8. NIACIN [Concomitant]
     Indication: PRURITUS
     Dosage: UNK
  9. NIACIN [Concomitant]
     Indication: FLUSHING
  10. MULTIVITAMINS, PLAIN [Concomitant]
     Dosage: UNK
     Route: 048

REACTIONS (2)
  - Pruritus [Recovered/Resolved]
  - Flushing [Recovered/Resolved]
